FAERS Safety Report 21767745 (Version 1)
Quarter: 2022Q4

REPORT INFORMATION
  Report Type: Spontaneous
  Country: US (occurrence: None)
  Receive Date: 20221221
  Receipt Date: 20221221
  Transmission Date: 20230113
  Serious: Yes (Hospitalization)
  Sender: FDA-Public Use
  Company Number: None

PATIENT
  Sex: Male

DRUGS (1)
  1. BOSULIF [Suspect]
     Active Substance: BOSUTINIB MONOHYDRATE
     Dosage: FREQUENCY : DAILY;?
     Route: 048
     Dates: start: 202205

REACTIONS (3)
  - Diarrhoea [None]
  - Abdominal pain [None]
  - Infection [None]
